FAERS Safety Report 15352831 (Version 2)
Quarter: 2018Q3

REPORT INFORMATION
  Report Type: Spontaneous
  Country: US (occurrence: US)
  Receive Date: 20180905
  Receipt Date: 20180907
  Transmission Date: 20181010
  Serious: Yes (Life-Threatening, Hospitalization, Other)
  Sender: FDA-Public Use
  Company Number: US-PFIZER INC-2018353860

PATIENT
  Age: 72 Year
  Sex: Male

DRUGS (3)
  1. CLADRIBINE. [Suspect]
     Active Substance: CLADRIBINE
     Indication: ACUTE MYELOID LEUKAEMIA
     Dosage: 5 MG/M2, CYCLIC (X 5 DAYS ON DAYS 1? 5)
     Route: 042
  2. DECITABINE. [Suspect]
     Active Substance: DECITABINE
  3. CYTARABINE. [Suspect]
     Active Substance: CYTARABINE
     Indication: ACUTE MYELOID LEUKAEMIA
     Dosage: 20 MG, CYCLIC (DAILY ON DAYS 1?10)
     Route: 058

REACTIONS (18)
  - Sepsis [Recovering/Resolving]
  - Myalgia [Unknown]
  - Arthralgia [Not Recovered/Not Resolved]
  - Asthenia [Unknown]
  - Renal failure [Recovering/Resolving]
  - Frequent bowel movements [Unknown]
  - Fatigue [Not Recovered/Not Resolved]
  - Dyspnoea exertional [Unknown]
  - Blood count abnormal [Recovered/Resolved]
  - Multiple organ dysfunction syndrome [Unknown]
  - Cardiac failure [Recovering/Resolving]
  - Hypotension [Unknown]
  - Febrile neutropenia [Unknown]
  - Neoplasm progression [Unknown]
  - Pneumonia [Not Recovered/Not Resolved]
  - Respiratory failure [Unknown]
  - Condition aggravated [Unknown]
  - Neutrophil count decreased [Unknown]
